FAERS Safety Report 20643905 (Version 1)
Quarter: 2022Q1

REPORT INFORMATION
  Report Type: Spontaneous
  Country: US (occurrence: None)
  Receive Date: 20220325
  Receipt Date: 20220325
  Transmission Date: 20220423
  Serious: No
  Sender: FDA-Public Use
  Company Number: None

PATIENT
  Sex: Female

DRUGS (1)
  1. OTEZLA [Suspect]
     Active Substance: APREMILAST
     Indication: Psoriasis
     Dosage: FREQUENCY : TWICE A DAY;?
     Route: 048
     Dates: start: 20211105

REACTIONS (8)
  - Drug ineffective [None]
  - Pruritus [None]
  - Skin burning sensation [None]
  - Pain [None]
  - Therapy interrupted [None]
  - Insurance issue [None]
  - Psoriasis [None]
  - Therapy cessation [None]
